FAERS Safety Report 10203999 (Version 1)
Quarter: 2014Q2

REPORT INFORMATION
  Report Type: Spontaneous
  Country: US (occurrence: US)
  Receive Date: 20140529
  Receipt Date: 20140529
  Transmission Date: 20141212
  Serious: Yes (Hospitalization)
  Sender: FDA-Public Use
  Company Number: US-ASTRAZENECA-2014SE36338

PATIENT
  Age: 48 Year
  Sex: Female

DRUGS (6)
  1. QUETIAPINE [Suspect]
     Route: 048
  2. IMIPRAMINE [Suspect]
  3. ALPRAZOLAM [Suspect]
  4. ZOLPIDEM [Suspect]
  5. TRAZODONE [Suspect]
  6. VENLAFAXINE [Suspect]

REACTIONS (2)
  - Overdose [Unknown]
  - Electrocardiogram QRS complex prolonged [Unknown]
